FAERS Safety Report 13557199 (Version 1)
Quarter: 2017Q2

REPORT INFORMATION
  Report Type: Spontaneous
  Country: US (occurrence: US)
  Receive Date: 20170518
  Receipt Date: 20170518
  Transmission Date: 20170830
  Serious: Yes (Other)
  Sender: FDA-Public Use
  Company Number: US-BAYER-2017-091303

PATIENT
  Age: 78 Year
  Sex: Female

DRUGS (3)
  1. BAYER ASPIRIN [Suspect]
     Active Substance: ASPIRIN
  2. CLOPIDOGREL [Concomitant]
     Active Substance: CLOPIDOGREL BISULFATE
  3. APIXABAN [Concomitant]
     Active Substance: APIXABAN

REACTIONS (4)
  - Labelled drug-drug interaction medication error [None]
  - Drug administration error [None]
  - Anaemia [None]
  - Rectal haemorrhage [Unknown]
